FAERS Safety Report 24932257 (Version 1)
Quarter: 2025Q1

REPORT INFORMATION
  Report Type: Report from Study
  Country: US (occurrence: US)
  Receive Date: 20250205
  Receipt Date: 20250205
  Transmission Date: 20250409
  Serious: No
  Sender: EXELIXIS
  Company Number: US-EXELIXIS-CABO-24080106

PATIENT
  Age: 63 Year
  Sex: Female

DRUGS (3)
  1. CABOMETYX [Suspect]
     Active Substance: CABOZANTINIB S-MALATE
     Indication: Hepatic cancer
     Dosage: 40 MG, QD
     Route: 048
  2. CABOMETYX [Suspect]
     Active Substance: CABOZANTINIB S-MALATE
     Indication: Neuroendocrine tumour
     Dosage: 60 MG, QD
     Route: 048
  3. CABOMETYX [Suspect]
     Active Substance: CABOZANTINIB S-MALATE
     Dosage: 40 MG, QD
     Route: 048

REACTIONS (16)
  - Dysphagia [Unknown]
  - Malaise [Unknown]
  - Blood pressure diastolic increased [Unknown]
  - Fatigue [Recovered/Resolved]
  - Nausea [Unknown]
  - Haemoptysis [Unknown]
  - Epistaxis [Unknown]
  - Diarrhoea [Unknown]
  - Vomiting [Unknown]
  - Pain in extremity [Unknown]
  - Erythema [Unknown]
  - Muscle spasms [Unknown]
  - Skin disorder [Unknown]
  - Dry throat [Unknown]
  - Muscular weakness [Unknown]
  - Dry mouth [Unknown]

NARRATIVE: CASE EVENT DATE: 20241205
